FAERS Safety Report 9790031 (Version 1)
Quarter: 2013Q4

REPORT INFORMATION
  Report Type: Spontaneous
  Country: US (occurrence: None)
  Receive Date: 20131230
  Receipt Date: 20131230
  Transmission Date: 20140711
  Serious: Yes (Other)
  Sender: FDA-Public Use
  Company Number: None

PATIENT
  Age: 48 Year
  Sex: Male
  Weight: 88.45 kg

DRUGS (1)
  1. MIRVASO [Suspect]
     Indication: ROSACEA
     Dosage: ANY TOPICAL, APPLIED TO A SURFACE USUALLY THE SKIN
     Dates: start: 20131219, end: 20131227

REACTIONS (2)
  - Rosacea [None]
  - Condition aggravated [None]
